FAERS Safety Report 9171015 (Version 2)
Quarter: 2013Q1

REPORT INFORMATION
  Report Type: Spontaneous
  Country: VE (occurrence: VE)
  Receive Date: 20130319
  Receipt Date: 20130325
  Transmission Date: 20140127
  Serious: No
  Sender: FDA-Public Use
  Company Number: VE-PFIZER INC-2013090271

PATIENT
  Age: 47 Year
  Sex: Female

DRUGS (4)
  1. ZOLOFT [Suspect]
     Indication: SLEEP APNOEA SYNDROME
     Dosage: 50 MG, UNK
  2. ZOLOFT [Suspect]
     Indication: FATIGUE
  3. LYRICA [Concomitant]
     Indication: FIBROMYALGIA
     Dosage: UNK
  4. LYRICA [Concomitant]
     Indication: NECK PAIN

REACTIONS (1)
  - Off label use [Unknown]
